FAERS Safety Report 16815035 (Version 7)
Quarter: 2020Q1

REPORT INFORMATION
  Report Type: Report from Study
  Country: CA (occurrence: CA)
  Receive Date: 20190917
  Receipt Date: 20200316
  Transmission Date: 20200409
  Serious: Yes (Hospitalization, Other)
  Sender: FDA-Public Use
  Company Number: PHHY2013CA059725

PATIENT
  Age: 75 Year
  Sex: Male

DRUGS (2)
  1. SANDOSTATIN LAR DEPOT [Suspect]
     Active Substance: OCTREOTIDE ACETATE
     Indication: PANCREATIC NEUROENDOCRINE TUMOUR
     Dosage: 30 MG, QMO
     Route: 030
     Dates: start: 20130607
  2. SANDOSTATIN [Suspect]
     Active Substance: OCTREOTIDE ACETATE
     Indication: PANCREATIC NEUROENDOCRINE TUMOUR
     Dosage: 50 MCG , ONCE/SINGLE
     Route: 058
     Dates: start: 20130530, end: 20130530

REACTIONS (20)
  - Localised infection [Unknown]
  - Cough [Unknown]
  - Hyperphagia [Unknown]
  - Diarrhoea [Unknown]
  - Peripheral swelling [Recovering/Resolving]
  - Renal failure [Unknown]
  - Blood pressure increased [Recovering/Resolving]
  - Sinusitis [Unknown]
  - Contusion [Unknown]
  - Oedema peripheral [Unknown]
  - Pneumonia [Unknown]
  - Decreased appetite [Unknown]
  - Blood pressure systolic increased [Recovering/Resolving]
  - Fall [Unknown]
  - Influenza [Unknown]
  - Heart rate increased [Unknown]
  - Renal disorder [Unknown]
  - Back injury [Unknown]
  - Musculoskeletal chest pain [Unknown]
  - Weight increased [Unknown]

NARRATIVE: CASE EVENT DATE: 20130607
